FAERS Safety Report 22987499 (Version 2)
Quarter: 2025Q2

REPORT INFORMATION
  Report Type: Report from Study
  Country: US (occurrence: US)
  Receive Date: 20230926
  Receipt Date: 20250515
  Transmission Date: 20250716
  Serious: Yes (Other)
  Sender: TAKEDA
  Company Number: US-TAKEDA-2023TUS016353

PATIENT
  Age: 60 Year
  Sex: Female
  Weight: 53 kg

DRUGS (30)
  1. HUMAN IMMUNOGLOBULIN G [Suspect]
     Active Substance: HUMAN IMMUNOGLOBULIN G
     Indication: Immune system disorder
     Dosage: 5 GRAM, 1/WEEK
     Dates: start: 20230128
  2. HUMAN IMMUNOGLOBULIN G [Suspect]
     Active Substance: HUMAN IMMUNOGLOBULIN G
     Dosage: 5 GRAM, 1/WEEK
     Dates: start: 20230224
  3. HUMAN IMMUNOGLOBULIN G [Suspect]
     Active Substance: HUMAN IMMUNOGLOBULIN G
     Dosage: 5 GRAM, 1/WEEK
  4. HUMAN IMMUNOGLOBULIN G [Suspect]
     Active Substance: HUMAN IMMUNOGLOBULIN G
  5. HIZENTRA [Suspect]
     Active Substance: HUMAN IMMUNOGLOBULIN G
     Indication: Product used for unknown indication
  6. PAXLOVID [Suspect]
     Active Substance: NIRMATRELVIR\RITONAVIR
     Indication: Product used for unknown indication
  7. REMDESIVIR [Suspect]
     Active Substance: REMDESIVIR
     Indication: Product used for unknown indication
  8. ZINC [Concomitant]
     Active Substance: ZINC
     Indication: Product used for unknown indication
  9. BORON [Concomitant]
     Active Substance: BORON
     Indication: Product used for unknown indication
  10. GLYCINE [Concomitant]
     Active Substance: GLYCINE
     Indication: Product used for unknown indication
  11. QUERCETIN DIHYDRATE [Concomitant]
     Active Substance: QUERCETIN DIHYDRATE
     Indication: Product used for unknown indication
  12. SELENIUM [Concomitant]
     Active Substance: SELENIUM
     Indication: Product used for unknown indication
  13. D mannose [Concomitant]
     Indication: Product used for unknown indication
  14. IPRATROPIUM BROMIDE [Concomitant]
     Active Substance: IPRATROPIUM BROMIDE
     Indication: Product used for unknown indication
  15. IRON [Concomitant]
     Active Substance: IRON
     Indication: Product used for unknown indication
  16. HYDROCORTISONE [Concomitant]
     Active Substance: HYDROCORTISONE
     Indication: Product used for unknown indication
  17. OXYGEN [Concomitant]
     Active Substance: OXYGEN
     Indication: Product used for unknown indication
  18. ALOE VERA LEAF [Concomitant]
     Active Substance: ALOE VERA LEAF
     Indication: Product used for unknown indication
  19. Omega [Concomitant]
     Indication: Product used for unknown indication
  20. VITAMIN B COMPLEX [Concomitant]
     Active Substance: CYANOCOBALAMIN\DEXPANTHENOL\NIACINAMIDE\PYRIDOXINE HYDROCHLORIDE\RIBOFLAVIN 5^-PHOSPHATE SODIUM\THIA
     Indication: Product used for unknown indication
  21. LOMOTIL [Concomitant]
     Active Substance: ATROPINE SULFATE\DIPHENOXYLATE HYDROCHLORIDE
     Indication: Product used for unknown indication
  22. FAMOTIDINE [Concomitant]
     Active Substance: FAMOTIDINE
     Indication: Product used for unknown indication
  23. MORPHINE SULFATE [Concomitant]
     Active Substance: MORPHINE SULFATE
     Indication: Product used for unknown indication
  24. DIPHENHYDRAMINE [Concomitant]
     Active Substance: DIPHENHYDRAMINE
  25. EPINEPHRINE [Concomitant]
     Active Substance: EPINEPHRINE
  26. Lmx [Concomitant]
  27. ACETAMINOPHEN [Concomitant]
     Active Substance: ACETAMINOPHEN
  28. NM-6603 [Concomitant]
     Active Substance: NM-6603
  29. FISH OIL [Concomitant]
     Active Substance: FISH OIL
  30. PANTOTHENIC ACID [Concomitant]
     Active Substance: PANTOTHENIC ACID

REACTIONS (29)
  - Rheumatoid arthritis [Unknown]
  - Systemic infection [Unknown]
  - Foreign body sensation in eyes [Unknown]
  - Eye pruritus [Unknown]
  - Hordeolum [Unknown]
  - COVID-19 [Unknown]
  - Arthritis [Unknown]
  - Skin exfoliation [Unknown]
  - Illness [Unknown]
  - Drug intolerance [Unknown]
  - Seasonal allergy [Unknown]
  - Frequent bowel movements [Unknown]
  - Pollakiuria [Unknown]
  - Nasopharyngitis [Unknown]
  - Ataxia [Unknown]
  - Post-acute COVID-19 syndrome [Unknown]
  - Eye contusion [Unknown]
  - Madarosis [Unknown]
  - Cyanosis [Unknown]
  - Pain [Unknown]
  - Night sweats [Unknown]
  - Muscular weakness [Unknown]
  - Tremor [Unknown]
  - Vomiting [Unknown]
  - Fatigue [Unknown]
  - Myalgia [Unknown]
  - Pyrexia [Unknown]
  - Nausea [Unknown]
  - Headache [Unknown]

NARRATIVE: CASE EVENT DATE: 20230807
